FAERS Safety Report 19075896 (Version 2)
Quarter: 2021Q3

REPORT INFORMATION
  Report Type: Spontaneous
  Country: US (occurrence: US)
  Receive Date: 20210330
  Receipt Date: 20210923
  Transmission Date: 20211014
  Serious: Yes (Hospitalization, Other)
  Sender: FDA-Public Use
  Company Number: US-GILEAD-2021-0523094

PATIENT
  Sex: Female
  Weight: 83.45 kg

DRUGS (62)
  1. GENVOYA [Concomitant]
     Active Substance: COBICISTAT\ELVITEGRAVIR\EMTRICITABINE\TENOFOVIR ALAFENAMIDE FUMARATE
  2. SUSTIVA [Concomitant]
     Active Substance: EFAVIRENZ
  3. ATENOLOL. [Concomitant]
     Active Substance: ATENOLOL
  4. COLCHICINE. [Concomitant]
     Active Substance: COLCHICINE
  5. CYCLOBENZAPRINE. [Concomitant]
     Active Substance: CYCLOBENZAPRINE
  6. LORATADINE. [Concomitant]
     Active Substance: LORATADINE
  7. NOVOLOG [Concomitant]
     Active Substance: INSULIN ASPART
  8. ONDANSETRON [Concomitant]
     Active Substance: ONDANSETRON
  9. SIMCOR [SIMVASTATIN] [Concomitant]
     Active Substance: SIMVASTATIN
  10. SUCRALFATE. [Concomitant]
     Active Substance: SUCRALFATE
  11. EFAVIRENZ. [Concomitant]
     Active Substance: EFAVIRENZ
  12. HUMALOG [Concomitant]
     Active Substance: INSULIN LISPRO
  13. LISINOPRIL. [Concomitant]
     Active Substance: LISINOPRIL
  14. NAFTIN [Concomitant]
     Active Substance: NAFTIFINE HYDROCHLORIDE
  15. NAPROXEN. [Concomitant]
     Active Substance: NAPROXEN
  16. NASONEX [Concomitant]
     Active Substance: MOMETASONE FUROATE
  17. PREDNISONE. [Concomitant]
     Active Substance: PREDNISONE
  18. TRUVADA [Suspect]
     Active Substance: EMTRICITABINE\TENOFOVIR DISOPROXIL FUMARATE
     Dosage: UNK
     Route: 048
     Dates: start: 20070312, end: 201909
  19. BIKTARVY [Concomitant]
     Active Substance: BICTEGRAVIR SODIUM\EMTRICITABINE\TENOFOVIR ALAFENAMIDE FUMARATE
  20. AMOXCLAV [AMOXICILLIN;CLAVULANIC ACID] [Concomitant]
     Active Substance: AMOXICILLIN\CLAVULANIC ACID
  21. CITALOPRAM [Concomitant]
     Active Substance: CITALOPRAM HYDROBROMIDE
  22. COMBIGAN [Concomitant]
     Active Substance: BRIMONIDINE TARTRATE\TIMOLOL MALEATE
  23. LATANOPROST. [Concomitant]
     Active Substance: LATANOPROST
  24. OMEPRAZOLE. [Concomitant]
     Active Substance: OMEPRAZOLE
  25. RANITIDINE. [Concomitant]
     Active Substance: RANITIDINE
  26. TRAMADOL. [Concomitant]
     Active Substance: TRAMADOL
  27. HYDROCHLOROTHIAZIDE. [Concomitant]
     Active Substance: HYDROCHLOROTHIAZIDE
  28. IBUPROFEN. [Concomitant]
     Active Substance: IBUPROFEN
  29. LAMIVUDIN [Concomitant]
     Active Substance: LAMIVUDINE
  30. ZIDOVUDIN [Concomitant]
     Active Substance: ZIDOVUDINE
  31. LEVOFLOXACIN. [Concomitant]
     Active Substance: LEVOFLOXACIN
  32. OXYCODONE [Concomitant]
     Active Substance: OXYCODONE
  33. PANTOPRAZOLE [Concomitant]
     Active Substance: PANTOPRAZOLE
  34. PEG 3350 [Concomitant]
     Active Substance: POLYETHYLENE GLYCOL 3350
  35. TRIAMTERENE. [Concomitant]
     Active Substance: TRIAMTERENE
  36. VITAMIN D2 [Concomitant]
     Active Substance: ERGOCALCIFEROL
  37. AMMONIUM LACTATE. [Concomitant]
     Active Substance: AMMONIUM LACTATE
  38. HYDROCODONE [Concomitant]
     Active Substance: HYDROCODONE
  39. PENICILLIN [PENICILLIN NOS] [Concomitant]
     Active Substance: PENICILLIN
  40. TRUVADA [Suspect]
     Active Substance: EMTRICITABINE\TENOFOVIR DISOPROXIL FUMARATE
     Indication: HIV INFECTION
     Dosage: UNK
     Route: 048
     Dates: start: 2015
  41. TRIUMEQ [Concomitant]
     Active Substance: ABACAVIR SULFATE\DOLUTEGRAVIR SODIUM\LAMIVUDINE
  42. AMOXICILLIN. [Concomitant]
     Active Substance: AMOXICILLIN
  43. AZITHROMYCIN ANHYDROUS. [Concomitant]
     Active Substance: AZITHROMYCIN ANHYDROUS
  44. LYRICA [Concomitant]
     Active Substance: PREGABALIN
  45. METOCLOPRAMIDE. [Concomitant]
     Active Substance: METOCLOPRAMIDE
  46. NOVOLIN R [Concomitant]
     Active Substance: INSULIN HUMAN
  47. PROMETHAZINE [Concomitant]
     Active Substance: PROMETHAZINE HYDROCHLORIDE
  48. COMBIVIR [Concomitant]
     Active Substance: LAMIVUDINE\ZIDOVUDINE
  49. ACETAMINOPHEN. [Concomitant]
     Active Substance: ACETAMINOPHEN
  50. ALBUTEROL SULFATE. [Concomitant]
     Active Substance: ALBUTEROL SULFATE
  51. LUMIGAN [Concomitant]
     Active Substance: BIMATOPROST
  52. POLYMYXIN [Concomitant]
     Active Substance: POLYMYXIN
  53. PREMARIN [Concomitant]
     Active Substance: ESTROGENS, CONJUGATED
  54. SULFAMETH/TRIMETH [Concomitant]
     Active Substance: SULFAMETHOXAZOLE\TRIMETHOPRIM
  55. AMLODIPINE [Concomitant]
     Active Substance: AMLODIPINE BESYLATE
  56. CEPHALEXIN [CEFALEXIN] [Concomitant]
     Active Substance: CEPHALEXIN
  57. DORZOLAMIDE [Concomitant]
     Active Substance: DORZOLAMIDE
  58. FLUTICASONE. [Concomitant]
     Active Substance: FLUTICASONE
  59. GABAPENTIN. [Concomitant]
     Active Substance: GABAPENTIN
  60. HUMULIN R [Concomitant]
     Active Substance: INSULIN HUMAN
  61. METFORMIN [Concomitant]
     Active Substance: METFORMIN HYDROCHLORIDE
  62. PROVENTIL [Concomitant]
     Active Substance: ALBUTEROL

REACTIONS (9)
  - Chronic kidney disease [Not Recovered/Not Resolved]
  - Anxiety [Not Recovered/Not Resolved]
  - Emotional distress [Not Recovered/Not Resolved]
  - Dyspnoea [Not Recovered/Not Resolved]
  - Chronic kidney disease-mineral and bone disorder [Not Recovered/Not Resolved]
  - Quality of life decreased [Not Recovered/Not Resolved]
  - Anhedonia [Not Recovered/Not Resolved]
  - Pain [Not Recovered/Not Resolved]
  - Renal failure [Recovered/Resolved]

NARRATIVE: CASE EVENT DATE: 2016
